FAERS Safety Report 13667689 (Version 3)
Quarter: 2017Q4

REPORT INFORMATION
  Report Type: Spontaneous
  Country: IT (occurrence: IT)
  Receive Date: 20170620
  Receipt Date: 20171101
  Transmission Date: 20180320
  Serious: Yes (Hospitalization)
  Sender: FDA-Public Use
  Company Number: IT-009507513-1706ITA006418

PATIENT
  Age: 79 Year
  Sex: Female

DRUGS (6)
  1. DIAMICRON [Suspect]
     Active Substance: GLICLAZIDE
     Indication: DIABETES MELLITUS
     Dosage: 60 MG, QD
     Route: 048
     Dates: end: 20170421
  2. SIMVASTATIN. [Concomitant]
     Active Substance: SIMVASTATIN
     Dosage: 20 MG, UNK
     Route: 048
  3. ALENDRONIC ACID [Concomitant]
     Active Substance: ALENDRONIC ACID
     Dosage: 70 MG, UNK
     Route: 048
  4. GASTROLOC [Concomitant]
     Dosage: 20 MG, GASTRORESISTANT TABLET
     Route: 048
  5. EFFICIB [Suspect]
     Active Substance: METFORMIN HYDROCHLORIDE\SITAGLIPTIN PHOSPHATE
     Indication: DIABETES MELLITUS
     Dosage: STRENGETH: 50 MG/850 MG
  6. KARVEZIDE [Concomitant]
     Active Substance: HYDROCHLOROTHIAZIDE\IRBESARTAN
     Dosage: 150 MG/12.5 MG, 1 DOSE UNIT
     Route: 048

REACTIONS (4)
  - Fatigue [Recovered/Resolved]
  - Nausea [Recovered/Resolved]
  - Hypoglycaemia [Recovered/Resolved]
  - Vomiting [Recovered/Resolved]

NARRATIVE: CASE EVENT DATE: 20170421
